FAERS Safety Report 16308547 (Version 1)
Quarter: 2019Q2

REPORT INFORMATION
  Report Type: Spontaneous
  Country: SE (occurrence: SE)
  Receive Date: 20190514
  Receipt Date: 20190514
  Transmission Date: 20190711
  Serious: Yes (Other)
  Sender: FDA-Public Use
  Company Number: SE-PFIZER INC-2019197758

PATIENT
  Sex: Male

DRUGS (6)
  1. CANDESARTAN/HYDROCHLOROTHIAZIDE [Concomitant]
     Dosage: UNK, 1X/DAY (32MG/12.5 MG, 0.5-1 TABLET 1X/DAY)
     Dates: start: 20181218
  2. GEMADOL [TRAMADOL HYDROCHLORIDE] [Concomitant]
     Dosage: UNK
     Route: 048
     Dates: start: 20181123
  3. GABAPENTIN. [Suspect]
     Active Substance: GABAPENTIN
     Indication: FIBROMYALGIA
  4. PRAMIPEXOLE. [Concomitant]
     Active Substance: PRAMIPEXOLE
     Dosage: 0.09 MG, AS NEEDED (1/2 TABLET AT NIGHT AS NEEDED)
     Route: 048
     Dates: start: 20160920
  5. GABAPENTIN. [Suspect]
     Active Substance: GABAPENTIN
     Indication: NEURALGIA
     Dosage: 300 MG, 1X/DAY (TAKEN IN PERIODS)
     Route: 048
     Dates: start: 20181217, end: 201902
  6. ORUDIS [Concomitant]
     Active Substance: KETOPROFEN
     Dosage: 1 DF, AS NEEDED
     Dates: start: 20161206

REACTIONS (2)
  - Palpitations [Recovered/Resolved]
  - Tachycardia [Recovered/Resolved]
